FAERS Safety Report 26043601 (Version 1)
Quarter: 2025Q4

REPORT INFORMATION
  Report Type: Report from Study
  Country: ZA (occurrence: ZA)
  Receive Date: 20251113
  Receipt Date: 20251113
  Transmission Date: 20260117
  Serious: Yes (Other)
  Sender: ROCHE
  Company Number: ZA-ROCHE-10000238231

PATIENT
  Sex: Female

DRUGS (1)
  1. VABYSMO [Suspect]
     Active Substance: FARICIMAB-SVOA
     Indication: Macular degeneration
     Dosage: 2ND INJECTION: 04 APR 2025, 3RD INJECTION: 07 MAY 2025?4TH INJECTION: 13 JUN 2025?5TH INJECTION: 10
     Route: 050
     Dates: start: 20250307

REACTIONS (4)
  - Retinal thickening [Unknown]
  - Visual impairment [Unknown]
  - Optical coherence tomography abnormal [Unknown]
  - Off label use [Unknown]
